FAERS Safety Report 21177534 (Version 1)
Quarter: 2022Q3

REPORT INFORMATION
  Report Type: Spontaneous
  Country: US (occurrence: US)
  Receive Date: 20220805
  Receipt Date: 20220805
  Transmission Date: 20221027
  Serious: No
  Sender: FDA-Public Use
  Company Number: US-ALLERGAN-2223376US

PATIENT
  Age: 77 Year
  Sex: Male

DRUGS (2)
  1. VUITY [Suspect]
     Active Substance: PILOCARPINE HYDROCHLORIDE
     Indication: Product used for unknown indication
     Dosage: 2 GTT
     Route: 047
     Dates: start: 202207, end: 202207
  2. VUITY [Suspect]
     Active Substance: PILOCARPINE HYDROCHLORIDE
     Dosage: 2 GTT
     Route: 047
     Dates: start: 202206, end: 202206

REACTIONS (2)
  - Headache [Recovered/Resolved]
  - Drug ineffective [Unknown]

NARRATIVE: CASE EVENT DATE: 20220601
